FAERS Safety Report 6161538-2 (Version None)
Quarter: 2009Q2

REPORT INFORMATION
  Report Type: 
  Country: None (occurrence: None)
  Receive Date: 20090421
  Receipt Date: 20090413
  Transmission Date: 20091009
  Serious: Yes (Hospitalization)
  Sender: FDA-Public Use
  Company Number: ES-ELI_LILLY_AND_COMPANY-ES200904002626

PATIENT
  Age: 78 Year
  Sex: Female

DRUGS (1)
  1. FORTEO [Suspect]
     Indication: OSTEOPOROSIS
     Dosage: 20 UG, DAILY (1/D)
     Route: 058
     Dates: start: 20081101, end: 20090407

REACTIONS (8)
  - ASTHENIA [None]
  - BRONCHITIS [None]
  - CARDIAC FAILURE [None]
  - FATIGUE [None]
  - GOITRE [None]
  - NERVOUSNESS [None]
  - PALPITATIONS [None]
  - TACHYCARDIA [None]
